FAERS Safety Report 7442012-X (Version None)
Quarter: 2011Q2

REPORT INFORMATION
  Report Type: 
  Country: None (occurrence: None)
  Receive Date: 20110419
  Receipt Date: 20110406
  Transmission Date: 20111010
  Serious: Yes (Other)
  Sender: FDA-Public Use
  Company Number: DSA_45347_2011

PATIENT
  Age: 44 Year
  Sex: Female

DRUGS (8)
  1. ALL OTHER THERAPEUTIC PRODUCTS (ALL OTHER THERAPEUTIC PRODUCTS) [Concomitant]
  2. PROMOCARD [Concomitant]
  3. SIMVASTATIN [Concomitant]
  4. DILTIAZEM HYDROCHLORIDE [Suspect]
     Indication: CARDIAC DISORDER
     Dosage: (90 MG, ORAL)
     Route: 048
     Dates: start: 20100715, end: 20100815
  5. FILMOMHULD [Concomitant]
  6. ASCAL /00002702/ [Concomitant]
  7. PANTOZOL /01263202/ [Concomitant]
  8. PLAVIX [Concomitant]

REACTIONS (3)
  - URTICARIA [None]
  - VASCULITIS [None]
  - APHTHOUS STOMATITIS [None]
